FAERS Safety Report 9192503 (Version 8)
Quarter: 2016Q2

REPORT INFORMATION
  Report Type: Spontaneous
  Country: US (occurrence: US)
  Receive Date: 20130327
  Receipt Date: 20160526
  Transmission Date: 20160815
  Serious: No
  Sender: FDA-Public Use
  Company Number: US-PFIZER INC-2013095027

PATIENT
  Age: 62 Year
  Sex: Female

DRUGS (10)
  1. EFFEXOR XR [Suspect]
     Active Substance: VENLAFAXINE HYDROCHLORIDE
     Indication: MIGRAINE
     Dosage: 37.5 MG FOR FIRST WEEK
     Dates: start: 20070226, end: 200703
  2. CODEINE [Suspect]
     Active Substance: CODEINE
     Indication: ABDOMINAL DISCOMFORT
  3. ZESTRIL [Suspect]
     Active Substance: LISINOPRIL
     Indication: SINUSITIS
     Dosage: UNK
     Dates: start: 1976
  4. MIGRIL [Concomitant]
     Active Substance: CAFFEINE\CYCLIZINE HYDROCHLORIDE\ERGOTAMINE TARTRATE
     Dosage: 4 MG, UNK
  5. EFFEXOR XR [Suspect]
     Active Substance: VENLAFAXINE HYDROCHLORIDE
     Dosage: 75 MG AT BEDTIME FOR THREE WEEKS
     Dates: start: 2007, end: 20070806
  6. MIDRIN [Concomitant]
     Active Substance: ACETAMINOPHEN\DICHLORALPHENAZONE\ISOMETHEPTENE
     Dosage: UNK
  7. CODEINE [Suspect]
     Active Substance: CODEINE
     Indication: MIGRAINE
     Dosage: UNK
     Dates: start: 1976
  8. NORTRIPTYLINE [Concomitant]
     Active Substance: NORTRIPTYLINE
     Dosage: 25 MG, UNK
     Dates: start: 20070806
  9. CODEINE [Suspect]
     Active Substance: CODEINE
     Indication: BACK PAIN
     Dosage: UNK
     Dates: start: 1964
  10. LISINOPRIL. [Suspect]
     Active Substance: LISINOPRIL
     Dosage: UNK

REACTIONS (3)
  - Drug hypersensitivity [Recovered/Resolved]
  - Hyperhidrosis [Recovered/Resolved]
  - Allergy to metals [Recovered/Resolved]

NARRATIVE: CASE EVENT DATE: 1965
